FAERS Safety Report 11387295 (Version 1)
Quarter: 2015Q3

REPORT INFORMATION
  Report Type: Spontaneous
  Country: ES (occurrence: ES)
  Receive Date: 20150817
  Receipt Date: 20150817
  Transmission Date: 20151125
  Serious: Yes (Death)
  Sender: FDA-Public Use
  Company Number: ES-JNJFOC-20150808176

PATIENT
  Age: 55 Year
  Sex: Male
  Weight: 80 kg

DRUGS (5)
  1. SOVALDI [Interacting]
     Active Substance: SOFOSBUVIR
     Indication: HEPATITIS C
     Route: 048
     Dates: start: 20150227, end: 20150511
  2. EPIVIR [Interacting]
     Active Substance: LAMIVUDINE
     Indication: HIV INFECTION
     Route: 065
  3. ZIAGEN [Interacting]
     Active Substance: ABACAVIR SULFATE
     Indication: HIV INFECTION
     Route: 065
  4. RILPIVIRINE [Interacting]
     Active Substance: RILPIVIRINE
     Indication: HIV INFECTION
     Route: 048
  5. OLYSIO [Suspect]
     Active Substance: SIMEPREVIR
     Indication: HEPATITIS C
     Route: 048
     Dates: start: 20150227, end: 20150511

REACTIONS (8)
  - Pyrexia [Fatal]
  - Respiratory failure [Fatal]
  - Renal failure [Fatal]
  - Dyspnoea [Recovered/Resolved]
  - Malaise [Recovered/Resolved]
  - Multi-organ failure [Fatal]
  - Respiratory tract infection [Fatal]
  - Drug interaction [Unknown]

NARRATIVE: CASE EVENT DATE: 20150511
